FAERS Safety Report 9424519 (Version 1)
Quarter: 2013Q3

REPORT INFORMATION
  Report Type: Spontaneous
  Country: US (occurrence: US)
  Receive Date: 20130729
  Receipt Date: 20130729
  Transmission Date: 20140515
  Serious: Yes (Life-Threatening)
  Sender: FDA-Public Use
  Company Number: CHPA2013US011882

PATIENT
  Sex: Female

DRUGS (2)
  1. PRIVATE LABEL [Suspect]
     Dosage: UNK, UNK
     Route: 062
     Dates: start: 20130724
  2. PRIVATE LABEL [Suspect]
     Route: 062

REACTIONS (8)
  - Cardiac disorder [Recovering/Resolving]
  - Feeling abnormal [Recovering/Resolving]
  - Headache [Recovering/Resolving]
  - Depressed mood [Recovering/Resolving]
  - Nicotine dependence [Unknown]
  - Treatment noncompliance [Unknown]
  - Incorrect dose administered [Unknown]
  - Wrong technique in drug usage process [Unknown]
